FAERS Safety Report 12318402 (Version 1)
Quarter: 2016Q2

REPORT INFORMATION
  Report Type: Spontaneous
  Country: US (occurrence: US)
  Receive Date: 20160429
  Receipt Date: 20160429
  Transmission Date: 20160815
  Serious: No
  Sender: FDA-Public Use
  Company Number: US-PFIZER INC-2016200862

PATIENT
  Sex: Male

DRUGS (2)
  1. LYRICA [Suspect]
     Active Substance: PREGABALIN
     Dosage: 150 MG, ONE AT NIGHT
  2. LYRICA [Suspect]
     Active Substance: PREGABALIN
     Indication: WRIST FRACTURE
     Dosage: 75 MG, ONE AT NIGHT

REACTIONS (3)
  - Somnolence [Unknown]
  - Drug ineffective for unapproved indication [Unknown]
  - Pain [Unknown]
